FAERS Safety Report 7160615 (Version 5)
Quarter: 2014Q4

REPORT INFORMATION
  Report Type: Spontaneous
  Country: US (occurrence: US)
  Receive Date: 20091028
  Receipt Date: 20141015
  Transmission Date: 20150529
  Serious: Yes (Hospitalization, Disabling)
  Sender: FDA-Public Use
  Company Number: US-BAYER-200936840NA

PATIENT
  Age: 38 Year
  Sex: Female
  Weight: 61.36 kg

DRUGS (7)
  1. YAZ [Suspect]
     Active Substance: DROSPIRENONE\ETHINYL ESTRADIOL
     Indication: DYSMENORRHOEA
     Dates: start: 200805
  2. GUAIFENESIN/CODEINE [Concomitant]
     Dosage: 100-10 MG/5 ML. ONE TO TWO TABLESPOONS WERE TAKEN EVERY FOUR HOURS
     Route: 048
     Dates: start: 20071024
  3. YASMIN [Suspect]
     Active Substance: DROSPIRENONE\ETHINYL ESTRADIOL
  4. DICYCLOMINE [Concomitant]
     Active Substance: DICYCLOMINE HYDROCHLORIDE
     Dosage: ONE TO TWO CAPSULES WERE USED THREE TIMES A DAY
     Route: 048
     Dates: start: 20080321
  5. AMPICILLIN [Concomitant]
     Active Substance: AMPICILLIN
     Dosage: UNK
     Dates: start: 20080607
  6. YASMIN [Suspect]
     Active Substance: DROSPIRENONE\ETHINYL ESTRADIOL
     Route: 048
     Dates: start: 20080430, end: 20080607
  7. TORADOL [Concomitant]
     Active Substance: KETOROLAC TROMETHAMINE
     Indication: ENDOMETRIOSIS
     Route: 048
     Dates: start: 2007, end: 20080324

REACTIONS (10)
  - Headache [Recovered/Resolved]
  - Brain oedema [Recovered/Resolved]
  - Cognitive disorder [Recovered/Resolved]
  - Product use issue [None]
  - Anxiety [Recovered/Resolved]
  - Cerebrovascular accident [Recovered/Resolved]
  - Mental impairment [Recovered/Resolved]
  - Amnesia [Recovered/Resolved]
  - Hemiparesis [Recovered/Resolved]
  - Pain [Recovered/Resolved]

NARRATIVE: CASE EVENT DATE: 20080607
